APPROVED DRUG PRODUCT: LEFLUNOMIDE
Active Ingredient: LEFLUNOMIDE
Strength: 20MG
Dosage Form/Route: TABLET;ORAL
Application: A213652 | Product #002 | TE Code: AB
Applicant: AUROBINDO PHARMA LTD
Approved: Mar 29, 2021 | RLD: No | RS: No | Type: RX